FAERS Safety Report 9716238 (Version 3)
Quarter: 2014Q2

REPORT INFORMATION
  Report Type: Report from Study
  Country: US (occurrence: US)
  Receive Date: 20131127
  Receipt Date: 20140501
  Transmission Date: 20141212
  Serious: Yes (Other)
  Sender: FDA-Public Use
  Company Number: US-SA-2013SA120736

PATIENT
  Age: 42 Year
  Sex: Female
  Weight: 209 kg

DRUGS (8)
  1. AUBAGIO [Suspect]
     Indication: MULTIPLE SCLEROSIS
     Route: 048
     Dates: start: 20130802, end: 201310
  2. AUBAGIO [Suspect]
     Indication: MULTIPLE SCLEROSIS
     Route: 048
     Dates: start: 201311
  3. LISINOPRIL [Concomitant]
  4. MECLIZINE [Concomitant]
     Dosage: 1/2 - 1 PRN
  5. JANUMET [Concomitant]
     Dosage: 50-100 1 PO BID
     Route: 048
  6. ATIVAN [Concomitant]
     Indication: MUSCLE SPASMS
     Dates: end: 20130414
  7. LANTUS SOLOSTAR [Concomitant]
  8. CELEXA [Concomitant]
     Dosage: STRENGTH 40 MG

REACTIONS (3)
  - Hepatic steatosis [Recovered/Resolved]
  - Hepatic enzyme increased [Unknown]
  - Fatigue [Unknown]
